FAERS Safety Report 6886304-1 (Version None)
Quarter: 2010Q3

REPORT INFORMATION
  Report Type: 
  Country: None (occurrence: None)
  Receive Date: 20100729
  Receipt Date: 20090413
  Transmission Date: 20110219
  Serious: Yes (Other)
  Sender: FDA-Public Use
  Company Number: US-PFIZER INC-2009197849

PATIENT
  Sex: Female
  Weight: 90.718 kg

DRUGS (3)
  1. CELEBREX [Suspect]
     Indication: ARTHRITIS
     Dates: start: 20080101
  2. LISINOPRIL [Concomitant]
     Dosage: UNK
  3. SYNTHROID [Concomitant]

REACTIONS (2)
  - HYPERTENSION [None]
  - RECTAL HAEMORRHAGE [None]
